FAERS Safety Report 23757651 (Version 1)
Quarter: 2024Q2

REPORT INFORMATION
  Report Type: Spontaneous
  Country: US (occurrence: None)
  Receive Date: 20240418
  Receipt Date: 20240418
  Transmission Date: 20240715
  Serious: No
  Sender: FDA-Public Use
  Company Number: None

PATIENT
  Age: 73 Year
  Sex: Female
  Weight: 63.5 kg

DRUGS (1)
  1. EZETIMIBE [Suspect]
     Active Substance: EZETIMIBE
     Indication: Blood cholesterol increased
     Dosage: OTHER QUANTITY : 1;?FREQUENCY : DAILY;?
     Route: 048
     Dates: start: 20231229

REACTIONS (6)
  - Tinnitus [None]
  - Poor quality sleep [None]
  - Confusional state [None]
  - Abnormal dreams [None]
  - Myalgia [None]
  - Myalgia [None]

NARRATIVE: CASE EVENT DATE: 20231229
